FAERS Safety Report 18407378 (Version 2)
Quarter: 2020Q4

REPORT INFORMATION
  Report Type: Spontaneous
  Country: AU (occurrence: AU)
  Receive Date: 20201020
  Receipt Date: 20201229
  Transmission Date: 20210114
  Serious: Yes (Other)
  Sender: FDA-Public Use
  Company Number: AU-BAYER-2020-222872

PATIENT
  Age: 7 Year
  Sex: Male

DRUGS (2)
  1. NASONEX [Suspect]
     Active Substance: MOMETASONE FUROATE
     Indication: MULTIPLE ALLERGIES
  2. CLARATYNE [Suspect]
     Active Substance: LORATADINE
     Dosage: 3 DF, QD

REACTIONS (2)
  - Adverse drug reaction [None]
  - Incorrect dose administered [None]
